FAERS Safety Report 7588633-5 (Version None)
Quarter: 2011Q3

REPORT INFORMATION
  Report Type: 
  Country: None (occurrence: None)
  Receive Date: 20110705
  Receipt Date: 20110522
  Transmission Date: 20111222
  Serious: Yes (Other)
  Sender: FDA-Public Use
  Company Number: US-BAYER-201036454NA

PATIENT
  Age: 29 Year
  Sex: Female
  Weight: 82 kg

DRUGS (10)
  1. BC HEADACHE [ACETYLSALICYLIC ACID,CAFFEINE,SALICYLAMIDE] [Concomitant]
  2. LOESTRIN 1.5/30 [Concomitant]
  3. ZEGERID [Concomitant]
  4. YASMIN [Suspect]
     Indication: MENSTRUATION IRREGULAR
     Dosage: UNK
     Route: 048
     Dates: start: 20030301, end: 20060101
  5. ACETAMINOPHEN [Concomitant]
     Indication: PAIN
  6. NEXIUM [Concomitant]
     Indication: GASTROOESOPHAGEAL REFLUX DISEASE
  7. GAVISCON [Concomitant]
  8. GOODYS HEADACHE [Concomitant]
     Indication: HEADACHE
     Dosage: WHEN NEEDED
  9. NIACIN [Concomitant]
  10. ACETAMINOPHEN [Concomitant]
     Indication: HEADACHE
     Dosage: WHEN NEEDED
     Dates: start: 20000101

REACTIONS (2)
  - CHOLELITHIASIS [None]
  - CHOLECYSTITIS CHRONIC [None]
